FAERS Safety Report 24841470 (Version 1)
Quarter: 2025Q1

REPORT INFORMATION
  Report Type: Spontaneous
  Country: US (occurrence: US)
  Receive Date: 20250114
  Receipt Date: 20250114
  Transmission Date: 20250408
  Serious: Yes (Other)
  Sender: PFIZER
  Company Number: US-PFIZER INC-PV202500003711

PATIENT
  Age: 70 Year
  Sex: Male

DRUGS (4)
  1. HYDROMORPHONE HYDROCHLORIDE [Suspect]
     Active Substance: HYDROMORPHONE HYDROCHLORIDE
  2. HYDROCODONE [Suspect]
     Active Substance: HYDROCODONE
  3. NAPROXEN [Suspect]
     Active Substance: NAPROXEN
  4. TRAMADOL [Suspect]
     Active Substance: TRAMADOL

REACTIONS (1)
  - Blood pressure decreased [Unknown]
